FAERS Safety Report 9969552 (Version 1)
Quarter: 2014Q1

REPORT INFORMATION
  Report Type: Spontaneous
  Country: FR (occurrence: FR)
  Receive Date: 20140306
  Receipt Date: 20140306
  Transmission Date: 20141002
  Serious: Yes (Life-Threatening, Hospitalization)
  Sender: FDA-Public Use
  Company Number: FR-ASTRAZENECA-2014SE15455

PATIENT
  Age: 20986 Day
  Sex: Female

DRUGS (6)
  1. BRILIQUE [Suspect]
     Route: 048
     Dates: start: 20140213, end: 20140223
  2. TRIATEC [Suspect]
     Route: 048
     Dates: start: 20140216, end: 20140220
  3. BISOCE [Suspect]
     Route: 048
     Dates: start: 20140214, end: 20140217
  4. INEXIUIM [Concomitant]
     Route: 048
     Dates: start: 20140213
  5. KARDEGIC [Concomitant]
     Route: 048
     Dates: start: 20140214
  6. CRESTOR [Concomitant]
     Route: 048
     Dates: start: 20140213

REACTIONS (3)
  - Asphyxia [Unknown]
  - Angioedema [Recovered/Resolved]
  - Oedema mouth [Unknown]
